FAERS Safety Report 9034140 (Version 1)
Quarter: 2013Q1

REPORT INFORMATION
  Report Type: Spontaneous
  Country: US (occurrence: US)
  Receive Date: 20130128
  Receipt Date: 20130128
  Transmission Date: 20140127
  Serious: Yes (Hospitalization)
  Sender: FDA-Public Use
  Company Number: US-AMGEN-USASP2012061420

PATIENT
  Age: 2 Year
  Sex: Male

DRUGS (2)
  1. ENBREL [Suspect]
     Dosage: UNK
     Route: 064
  2. ENBREL [Suspect]

REACTIONS (4)
  - Jaundice neonatal [Unknown]
  - Blood glucose decreased [Unknown]
  - Apgar score low [Unknown]
  - Exposure during breast feeding [Recovered/Resolved]
